FAERS Safety Report 10451165 (Version 2)
Quarter: 2014Q4

REPORT INFORMATION
  Report Type: Spontaneous
  Country: US (occurrence: US)
  Receive Date: 20140912
  Receipt Date: 20141218
  Transmission Date: 20150528
  Serious: No
  Sender: FDA-Public Use
  Company Number: US-GALDERMA-US14003032

PATIENT
  Age: 41 Year
  Sex: Female

DRUGS (17)
  1. FERROUS GLUCONATE [Concomitant]
     Active Substance: FERROUS GLUCONATE
     Indication: PULMONARY HYPERTENSION
     Route: 048
  2. BENZOYL PEROXIDE-ERYTHROMYCIN GEL [Concomitant]
     Dosage: 5%-3%
     Route: 061
  3. MIRVASO [Suspect]
     Active Substance: BRIMONIDINE TARTRATE
     Indication: ROSACEA
     Dosage: 0.33%
     Route: 061
     Dates: start: 20140721, end: 20140727
  4. MIRVASO [Suspect]
     Active Substance: BRIMONIDINE TARTRATE
     Route: 061
     Dates: start: 20140806, end: 201408
  5. FUROSEMIDE. [Concomitant]
     Active Substance: FUROSEMIDE
     Dosage: 40 MG
     Route: 048
  6. KLOR-CON [Concomitant]
     Active Substance: POTASSIUM CHLORIDE
     Route: 048
  7. TRACLEER [Concomitant]
     Active Substance: BOSENTAN\BOSENTAN MONOHYDRATE
     Route: 048
  8. PURPOSE CLEANSER [Concomitant]
     Indication: THERAPEUTIC SKIN CARE TOPICAL
     Route: 061
  9. HYDROQUINONE. [Concomitant]
     Active Substance: HYDROQUINONE
     Dosage: 4%
     Route: 061
  10. ADCIRCA [Concomitant]
     Active Substance: TADALAFIL
     Indication: PULMONARY HYPERTENSION
     Dosage: 40 MG
     Route: 048
     Dates: start: 2012
  11. OPSUMIT (MACITENTAN TABLETS) [Concomitant]
     Indication: PULMONARY HYPERTENSION
     Dosage: 1 TAB
     Route: 048
     Dates: start: 201402
  12. KLOR-CON [Concomitant]
     Active Substance: POTASSIUM CHLORIDE
     Indication: PULMONARY HYPERTENSION
     Dosage: 20 MEQ
     Route: 048
  13. TRETINOIN. [Concomitant]
     Active Substance: TRETINOIN
     Dosage: 0.025%
     Route: 061
  14. REMODULIN (TREPROSTINIL) INJECTION [Concomitant]
     Indication: PULMONARY HYPERTENSION
     Route: 058
     Dates: start: 201311
  15. FUROSEMIDE. [Concomitant]
     Active Substance: FUROSEMIDE
     Indication: PULMONARY HYPERTENSION
     Route: 048
     Dates: start: 2009
  16. SPIRONOLACTONE. [Concomitant]
     Active Substance: SPIRONOLACTONE
     Indication: PULMONARY HYPERTENSION
     Dosage: 100 MG
     Route: 048
  17. LORAZEPAM. [Concomitant]
     Active Substance: LORAZEPAM
     Indication: ANXIETY
     Dosage: 0.5 MG
     Route: 048

REACTIONS (4)
  - Rash papular [Recovered/Resolved]
  - Pain of skin [Recovered/Resolved]
  - Skin burning sensation [Recovered/Resolved]
  - Blister [Recovered/Resolved]

NARRATIVE: CASE EVENT DATE: 20140727
